FAERS Safety Report 20984480 (Version 1)
Quarter: 2022Q2

REPORT INFORMATION
  Report Type: Other
  Country: US (occurrence: None)
  Receive Date: 20220621
  Receipt Date: 20220621
  Transmission Date: 20220720
  Serious: Yes (Hospitalization)
  Sender: FDA-Public Use
  Company Number: US-ROCHE-3115660

PATIENT
  Age: 63 Year
  Sex: Male
  Weight: 99.880 kg

DRUGS (5)
  1. OCREVUS [Suspect]
     Active Substance: OCRELIZUMAB
     Indication: Primary progressive multiple sclerosis
     Dosage: NO: PRESCRIBED AS INFUSE 300MG INTRAVENOUSLY ON DAYS 1 AND 15 THEN INFUSE 600MG INTRAVENOUSLY EVERY
     Route: 042
     Dates: start: 202106
  2. OCREVUS [Suspect]
     Active Substance: OCRELIZUMAB
     Indication: Relapsing multiple sclerosis
  3. ROPINIROLE [Concomitant]
     Active Substance: ROPINIROLE
  4. BACLOFEN [Concomitant]
     Active Substance: BACLOFEN
  5. LEVOTHYROXINE [Concomitant]
     Active Substance: LEVOTHYROXINE

REACTIONS (5)
  - Secretion discharge [Unknown]
  - Pyrexia [Recovered/Resolved]
  - Sepsis [Unknown]
  - Seizure [Recovered/Resolved]
  - Loss of consciousness [Unknown]

NARRATIVE: CASE EVENT DATE: 20210601
